FAERS Safety Report 4761146-1 (Version None)
Quarter: 2005Q3

REPORT INFORMATION
  Report Type: 
  Country: None (occurrence: None)
  Receive Date: 20050901
  Receipt Date: 20050823
  Transmission Date: 20060218
  Serious: Yes (Life-Threatening)
  Sender: FDA-Public Use
  Company Number: 805#9#2005-00057

PATIENT
  Age: 2 Day
  Sex: Female

DRUGS (8)
  1. ALPROSTADIL [Suspect]
     Indication: HEART DISEASE CONGENITAL
     Dosage: 2.1 - 239 NG/KG/MIN IN SERVERAL DOSE TITRATION STEPS, INTRAVENOUS DRIP
     Route: 041
     Dates: start: 20050527, end: 20050806
  2. CEFAZOLIN-SODIUM-HYDRATE (CEFAZOLIN) [Concomitant]
  3. FRUCTOSE (FRUCTOSE) [Concomitant]
  4. POTASSIUM L-ASPARTATE (ASPARTATE POTASSIUM) [Concomitant]
  5. FUROSEMIDE [Concomitant]
  6. BUFEXAMAC (BUFEXAMAC) [Concomitant]
  7. MENATETRENONE (MENATETRENONE) [Concomitant]
  8. FLOMOXEF-SODIUM (FLOMOXEF SODIUM) [Concomitant]

REACTIONS (2)
  - APNOEIC ATTACK [None]
  - HYPONATRAEMIA [None]
